FAERS Safety Report 23870962 (Version 1)
Quarter: 2024Q2

REPORT INFORMATION
  Report Type: Spontaneous
  Country: GB (occurrence: GB)
  Receive Date: 20240518
  Receipt Date: 20240518
  Transmission Date: 20240716
  Serious: Yes (Hospitalization, Other)
  Sender: FDA-Public Use
  Company Number: GB-GLAXOSMITHKLINE-GB2024EME053263

PATIENT
  Age: 1 Day
  Sex: Male

DRUGS (2)
  1. ACYCLOVIR [Suspect]
     Active Substance: ACYCLOVIR
     Indication: Herpes simplex
     Dosage: 20 MILLIGRAM/KILOGRAM, 3 TIMES A DAY
     Route: 042
  2. ACYCLOVIR [Suspect]
     Active Substance: ACYCLOVIR
     Indication: Congenital herpes simplex infection

REACTIONS (8)
  - Sepsis neonatal [Unknown]
  - C-reactive protein increased [Unknown]
  - Jaundice neonatal [Unknown]
  - Neonatal respiratory failure [Unknown]
  - Dehydration [Unknown]
  - Respiratory failure [Unknown]
  - Pain [Unknown]
  - Ophthalmic herpes simplex [Unknown]
